FAERS Safety Report 6574538-5 (Version None)
Quarter: 2010Q1

REPORT INFORMATION
  Report Type: 
  Country: None (occurrence: None)
  Receive Date: 20100209
  Receipt Date: 20091116
  Transmission Date: 20100710
  Serious: No
  Sender: FDA-Public Use
  Company Number: A0785586A

PATIENT
  Age: 58 Year
  Sex: Female

DRUGS (2)
  1. PAXIL CR [Suspect]
     Indication: DEPRESSION
     Dosage: 12.5MG PER DAY
     Route: 048
     Dates: start: 20070101
  2. TOPROL-XL [Concomitant]

REACTIONS (4)
  - ANXIETY [None]
  - HEADACHE [None]
  - HYPERTENSION [None]
  - SINUS DISORDER [None]
